FAERS Safety Report 11684655 (Version 1)
Quarter: 2015Q4

REPORT INFORMATION
  Report Type: Spontaneous
  Country: US (occurrence: US)
  Receive Date: 20151029
  Receipt Date: 20151029
  Transmission Date: 20160304
  Serious: No
  Sender: FDA-Public Use
  Company Number: US-THE RITEDOSE CORPORATION-2015RIT000046

PATIENT
  Age: 73 Year
  Sex: Female
  Weight: 52.15 kg

DRUGS (4)
  1. BETAMETHASONE. [Concomitant]
     Active Substance: BETAMETHASONE
     Dosage: UNK
  2. ESTRADIOL                          /00045402/ [Concomitant]
     Indication: HOT FLUSH
     Dosage: UNK
  3. IPRATROPIUM BROMIDE AND ALBUTEROL SULFATE [Suspect]
     Active Substance: ALBUTEROL SULFATE\IPRATROPIUM BROMIDE
     Indication: ASTHMA
     Dosage: ONE TO TWO TIMES DAILY
  4. PROGESTERONE. [Concomitant]
     Active Substance: PROGESTERONE
     Indication: HOT FLUSH
     Dosage: UNK

REACTIONS (5)
  - Regurgitation [Unknown]
  - Hypersensitivity [Unknown]
  - Oesophageal irritation [Unknown]
  - Choking [Unknown]
  - Dysphagia [Unknown]
